FAERS Safety Report 6681410-9 (Version None)
Quarter: 2010Q2

REPORT INFORMATION
  Report Type: 
  Country: None (occurrence: None)
  Receive Date: 20100414
  Receipt Date: 20100408
  Transmission Date: 20101027
  Serious: Yes (Other)
  Sender: FDA-Public Use
  Company Number: B0647157A

PATIENT
  Sex: Female

DRUGS (1)
  1. REQUIP [Suspect]
     Indication: DRUG USE FOR UNKNOWN INDICATION
     Dates: start: 20090901, end: 20100318

REACTIONS (3)
  - DELUSION [None]
  - HALLUCINATION [None]
  - PERSONALITY DISORDER [None]
